FAERS Safety Report 4316449-1 (Version None)
Quarter: 2004Q1

REPORT INFORMATION
  Report Type: 
  Country: None (occurrence: None)
  Receive Date: 20040311
  Receipt Date: 20040224
  Transmission Date: 20041129
  Serious: Yes (Hospitalization)
  Sender: FDA-Public Use
  Company Number: F01200400353

PATIENT
  Age: 84 Year
  Sex: Male

DRUGS (6)
  1. FONDAPARINUX SODIUM - SOLUTION - [Suspect]
     Indication: ORTHOPEDIC PROCEDURE
     Dosage: 2.5 MG SUBCUTANEOUS
     Route: 058
     Dates: start: 20040205, end: 20040219
  2. VIOXX [Concomitant]
  3. MOVICOX (MELOXICAM) [Concomitant]
  4. HYZAAR (HYDROCHLOTHIAZIDE/ LOSARTAN POTASSIUM) [Concomitant]
  5. FUROSEMIDE [Concomitant]
  6. COTRIMOXAZOL (CO-TRIMOXAZOLE) [Concomitant]

REACTIONS (1)
  - DUODENAL ULCER HAEMORRHAGE [None]
